FAERS Safety Report 26128755 (Version 1)
Quarter: 2025Q4

REPORT INFORMATION
  Report Type: Spontaneous
  Country: JP (occurrence: JP)
  Receive Date: 20251208
  Receipt Date: 20251208
  Transmission Date: 20260117
  Serious: Yes (Hospitalization)
  Sender: MERCK SHARP & DOHME LLC
  Company Number: JP-009507513-2356025

PATIENT
  Age: 56 Year
  Sex: Male
  Weight: 39.8 kg

DRUGS (8)
  1. KEYTRUDA [Suspect]
     Active Substance: PEMBROLIZUMAB
     Indication: Oropharyngeal cancer
     Route: 041
     Dates: start: 20250526, end: 20250825
  2. DIMEMORFAN PHOSPHATE [Concomitant]
     Active Substance: DIMEMORFAN PHOSPHATE
     Route: 048
  3. Codeine Phosphate Powder [Concomitant]
     Route: 065
  4. Levothyroxine Sodium Hydrate Tablet [Concomitant]
     Route: 048
  5. DICLOFENAC SODIUM [Concomitant]
     Active Substance: DICLOFENAC SODIUM
     Route: 062
  6. AMOXICILLIN [Concomitant]
     Active Substance: AMOXICILLIN
     Route: 048
  7. Potassium Clavulanate; Amoxicillin Hydrate Tablet [Concomitant]
     Route: 048
  8. FENTANYL CITRATE [Concomitant]
     Active Substance: FENTANYL CITRATE
     Route: 062

REACTIONS (1)
  - Adrenocorticotropic hormone deficiency [Recovering/Resolving]

NARRATIVE: CASE EVENT DATE: 20250930
